FAERS Safety Report 21349979 (Version 2)
Quarter: 2022Q4

REPORT INFORMATION
  Report Type: Report from Study
  Country: GB (occurrence: GB)
  Receive Date: 20220919
  Receipt Date: 20221011
  Transmission Date: 20230113
  Serious: Yes (Other)
  Sender: FDA-Public Use
  Company Number: GB-ROCHE-3079195

PATIENT
  Age: 52 Year
  Sex: Female

DRUGS (15)
  1. ANASTROZOLE [Suspect]
     Active Substance: ANASTROZOLE
     Indication: Breast cancer metastatic
     Dosage: 1 MILLIGRAM, QD (1 MILLIGRAM DAILY; UNIT DOSE : 1 MG, FREQUENCY ; 1 , FREQUENCY TIME : 1 DAYS)
     Route: 048
  2. DOCETAXEL [Suspect]
     Active Substance: DOCETAXEL
     Indication: Breast cancer metastatic
     Dosage: 190 MILLIGRAM, Q3W (UNIT DOSE : 190 MG, FREQUENCY ; 1 , FREQUENCY TIME : 3 WEEKS,)
     Route: 042
     Dates: start: 20150303, end: 20150303
  3. DOCETAXEL [Suspect]
     Active Substance: DOCETAXEL
     Dosage: 150 MILLIGRAM, Q3W (UNIT DOSE : 150 MG, FREQUENCY ; 1 , FREQUENCY TIME : 3 WEEKS)
     Route: 042
     Dates: start: 20150324, end: 20150630
  4. PERTUZUMAB [Suspect]
     Active Substance: PERTUZUMAB
     Indication: Breast cancer metastatic
     Dosage: 420 MILLIGRAM, Q3W (UNIT DOSE : 420 MG, FREQUENCY ; 1 , FREQUENCY TIME : 3 WEEKS,)
     Route: 042
     Dates: start: 20150324
  5. PERTUZUMAB [Suspect]
     Active Substance: PERTUZUMAB
     Dosage: 840 MILLIGRAM, Q3W (UNIT DOSE : 840 MG, FREQUENCY ; 1 , FREQUENCY TIME : 3 WEEKS)
     Route: 042
     Dates: start: 20150303, end: 20150303
  6. TRASTUZUMAB [Suspect]
     Active Substance: TRASTUZUMAB
     Indication: Breast cancer metastatic
     Dosage: 600 MILLIGRAM, Q3W (UNIT DOSE : 600 MG, FREQUENCY ; 1 , FREQUENCY TIME : 3 WEEKS)
     Route: 058
     Dates: start: 20150303, end: 20150324
  7. TRASTUZUMAB [Suspect]
     Active Substance: TRASTUZUMAB
     Indication: Breast cancer metastatic
     Dosage: 515 MILLIGRAM, Q3W (UNIT DOSE : 515 MG, FREQUENCY ; 1 , FREQUENCY TIME : 3 WEEKS)
     Route: 042
     Dates: start: 20150414
  8. BORON [Concomitant]
     Active Substance: BORON
     Indication: Product used for unknown indication
     Dosage: 1 DOSAGE FORM, Q2D (UNIT DOSE : 1 DOSAGE FORMS, FREQUENCY ; 1 , FREQUENCY TIME : 2 DAYS,)
     Route: 048
     Dates: start: 20160326
  9. CALCIUM [Concomitant]
     Active Substance: CALCIUM
     Indication: Product used for unknown indication
     Dosage: 1 DOSAGE FORM, Q2D (UNIT DOSE : 1 DOSAGE FORMS, FREQUENCY ; 1 , FREQUENCY TIME : 2 DAYS,)
     Route: 048
     Dates: start: 20160326
  10. CHLORPHENIRAMINE MALEATE [Concomitant]
     Active Substance: CHLORPHENIRAMINE MALEATE
     Indication: Product used for unknown indication
     Dosage: 10 MILLIGRAM, Q3W (UNIT DOSE : 10 MG, FREQUENCY ; 1 , FREQUENCY TIME : 3 WEEKS)
     Route: 042
     Dates: start: 20150303
  11. DENOSUMAB [Concomitant]
     Active Substance: DENOSUMAB
     Indication: Bone disorder
     Dosage: 120 MILLIGRAM, Q6W (UNIT DOSE : 120 MG, FREQUENCY ; 1 , FREQUENCY TIME : 6 WEEKS)
     Route: 058
     Dates: start: 20150303, end: 20150408
  12. MAGNESIUM [Concomitant]
     Active Substance: MAGNESIUM
     Dosage: 1 DOSAGE FORM, QOD (UNIT DOSE : 1 DOSAGE FORMS, FREQUENCY ; 1 , FREQUENCY TIME : 2 DAYS)
     Route: 048
     Dates: start: 20160326
  13. OMEPRAZOLE [Concomitant]
     Active Substance: OMEPRAZOLE
     Indication: Product used for unknown indication
     Dosage: 20 MILLIGRAM, QD (20 MILLIGRAM DAILY; UNIT DOSE : 20 MG, FREQUENCY ; 1)
     Route: 048
     Dates: start: 20150303
  14. OXYCODONE [Concomitant]
     Active Substance: OXYCODONE
     Indication: Product used for unknown indication
     Dosage: 5 MILLIGRAM, QOD (UNIT DOSE : 5 MG, FREQUENCY ; 1 , FREQUENCY TIME : 2 DAYS)
     Route: 048
     Dates: start: 20160120
  15. ACETAMINOPHEN [Concomitant]
     Active Substance: ACETAMINOPHEN
     Indication: Product used for unknown indication
     Dosage: 1000 MILLIGRAM, Q3W (UNIT DOSE : 1000 MG, FREQUENCY ; 1 , FREQUENCY TIME : 3 WEEKS)
     Route: 048
     Dates: start: 20150303

REACTIONS (2)
  - Intracranial pressure increased [Recovered/Resolved]
  - Plantar fasciitis [Not Recovered/Not Resolved]

NARRATIVE: CASE EVENT DATE: 20180301
